FAERS Safety Report 5463523-2 (Version None)
Quarter: 2007Q3

REPORT INFORMATION
  Report Type: 
  Country: None (occurrence: None)
  Receive Date: 20070920
  Receipt Date: 20070911
  Transmission Date: 20080115
  Serious: Yes (Hospitalization, Other)
  Sender: FDA-Public Use
  Company Number: US-SHR-US-2007-027365

PATIENT
  Age: 60 Year
  Sex: Female
  Weight: 51.247 kg

DRUGS (5)
  1. BETASERON [Suspect]
     Indication: PRIMARY PROGRESSIVE MULTIPLE SCLEROSIS
     Dosage: 2 MIU, EVERY 2D
     Route: 058
     Dates: start: 20070719, end: 20070720
  2. BETASERON [Suspect]
     Dosage: UNK, UNK
     Route: 058
     Dates: start: 20070725, end: 20070726
  3. EPIPEN [Suspect]
     Dates: start: 20070720
  4. BACLOFEN [Concomitant]
     Dosage: 90 MG, 1X/DAY
     Dates: start: 19890101
  5. ZANAFLEX [Concomitant]
     Dosage: 12 MG/D, UNK
     Dates: start: 20070801

REACTIONS (14)
  - ASTHENIA [None]
  - ASTHENOPIA [None]
  - BLOOD PRESSURE SYSTOLIC INCREASED [None]
  - DIZZINESS [None]
  - DYSARTHRIA [None]
  - INAPPROPRIATE SCHEDULE OF DRUG ADMINISTRATION [None]
  - LETHARGY [None]
  - LIP SWELLING [None]
  - MUSCULAR WEAKNESS [None]
  - ORAL DISCOMFORT [None]
  - PALLOR [None]
  - SOMNOLENCE [None]
  - SUDDEN ONSET OF SLEEP [None]
  - URINARY TRACT INFECTION [None]
